FAERS Safety Report 17967338 (Version 2)
Quarter: 2020Q3

REPORT INFORMATION
  Report Type: Spontaneous
  Country: NL (occurrence: NL)
  Receive Date: 20200701
  Receipt Date: 20200715
  Transmission Date: 20201103
  Serious: Yes (Other)
  Sender: FDA-Public Use
  Company Number: NL-TEVA-2020-NL-1793144

PATIENT
  Age: 17 Year
  Sex: Female

DRUGS (1)
  1. OXAZEPAM. [Suspect]
     Active Substance: OXAZEPAM
     Indication: DEPRESSION
     Dosage: HAD TAKEN 2 TABLETS PRIOR TO ADR
     Route: 065

REACTIONS (4)
  - Paralysis [Unknown]
  - Confusional state [Unknown]
  - Asthenia [Unknown]
  - Alcohol interaction [Unknown]
